FAERS Safety Report 4406406-9 (Version None)
Quarter: 2004Q3

REPORT INFORMATION
  Report Type: 
  Country: None (occurrence: None)
  Receive Date: 20040723
  Receipt Date: 20030721
  Transmission Date: 20050211
  Serious: Yes (Life-Threatening, Other)
  Sender: FDA-Public Use
  Company Number: USA030740754

PATIENT
  Age: 53 Year
  Sex: Female
  Weight: 86.4 kg

DRUGS (7)
  1. AVANDIA [Suspect]
     Dosage: 8MG PER DAY
     Route: 048
     Dates: start: 20020101, end: 20030101
  2. HUMULIN N [Concomitant]
     Dates: start: 19870329
  3. HUMULIN R [Concomitant]
     Dosage: 26UD PER DAY
     Dates: start: 19870329
  4. ACCUPRIL [Concomitant]
     Indication: HYPERTENSION
     Dosage: 20MG PER DAY
     Dates: start: 20010101
  5. COREG [Concomitant]
     Indication: HYPERTENSION
     Dosage: 12.5MG TWICE PER DAY
     Route: 048
     Dates: start: 20000101
  6. ACCOLATE [Concomitant]
     Indication: ASTHMA
     Dosage: 20MG TWICE PER DAY
     Dates: start: 20000101
  7. ASPIRIN [Concomitant]
     Indication: ARTHRITIS
     Route: 048
     Dates: start: 19990101

REACTIONS (1)
  - WEIGHT INCREASED [None]
